FAERS Safety Report 4983663-1 (Version None)
Quarter: 2006Q2

REPORT INFORMATION
  Report Type: 
  Country: None (occurrence: None)
  Receive Date: 20060425
  Receipt Date: 20060425
  Transmission Date: 20061013
  Serious: Yes (Congenital Anomaly)
  Sender: FDA-Public Use
  Company Number: None

PATIENT
  Sex: Male
  Weight: 3.22 kg

DRUGS (1)
  1. IRESSA [Suspect]
     Indication: ADENOCARCINOMA
     Dosage: 250 MG QD PO
     Route: 048
     Dates: start: 20040301, end: 20060424

REACTIONS (11)
  - ANOMALY OF EXTERNAL EAR CONGENITAL [None]
  - CLEFT LIP AND PALATE [None]
  - CONGENITAL ANOMALY [None]
  - CONGENITAL DIAPHRAGMATIC HERNIA [None]
  - CRYPTORCHISM [None]
  - EYE DISORDER [None]
  - HIRSUTISM [None]
  - MICROGNATHIA [None]
  - NAIL DISORDER [None]
  - TRANSMISSION OF DRUG VIA SEMEN [None]
  - VENTRICULAR SEPTAL DEFECT [None]
